FAERS Safety Report 16885900 (Version 1)
Quarter: 2019Q4

REPORT INFORMATION
  Report Type: Spontaneous
  Country: PT (occurrence: PT)
  Receive Date: 20191004
  Receipt Date: 20191004
  Transmission Date: 20200122
  Serious: Yes (Other)
  Sender: FDA-Public Use
  Company Number: PT-MYLANLABS-2019M1091937

PATIENT
  Age: 35 Year
  Sex: Male

DRUGS (12)
  1. LAMIVUDINE. [Suspect]
     Active Substance: LAMIVUDINE
     Indication: ANTIRETROVIRAL THERAPY
     Dosage: UNK
  2. QUETIAPINE FUMARATE. [Suspect]
     Active Substance: QUETIAPINE FUMARATE
     Indication: PRODUCT USED FOR UNKNOWN INDICATION
     Dosage: UNK
  3. MIRTAZAPINE. [Suspect]
     Active Substance: MIRTAZAPINE
     Indication: PRODUCT USED FOR UNKNOWN INDICATION
     Dosage: UNK
     Route: 048
  4. TRAZODONE HYDROCHLORIDE. [Suspect]
     Active Substance: TRAZODONE HYDROCHLORIDE
     Indication: PRODUCT USED FOR UNKNOWN INDICATION
     Dosage: UNK
  5. ZIDOVUDINE. [Suspect]
     Active Substance: ZIDOVUDINE
     Indication: ANTIRETROVIRAL THERAPY
     Dosage: UNK
  6. EMTRICITABINE W/TENOFOVIR [Suspect]
     Active Substance: EMTRICITABINE\TENOFOVIR DISOPROXIL
     Indication: ANTIRETROVIRAL THERAPY
     Dosage: UNK
     Route: 065
  7. SERTRALINE [Suspect]
     Active Substance: SERTRALINE HYDROCHLORIDE
     Indication: ANTIRETROVIRAL THERAPY
     Dosage: UNK
  8. TIAPRIDE [Suspect]
     Active Substance: TIAPRIDE
     Indication: ANTIRETROVIRAL THERAPY
     Dosage: UNK
  9. LOPINAVIR/RITONAVIR [Suspect]
     Active Substance: LOPINAVIR\RITONAVIR
     Indication: ANTIRETROVIRAL THERAPY
     Dosage: UNK
  10. OLANZAPINE. [Suspect]
     Active Substance: OLANZAPINE
     Indication: PRODUCT USED FOR UNKNOWN INDICATION
     Dosage: UNK
  11. METHADONE HYDROCHLORIDE. [Suspect]
     Active Substance: METHADONE HYDROCHLORIDE
     Indication: PRODUCT USED FOR UNKNOWN INDICATION
     Dosage: UNK
  12. VENLAFAXINE HYDROCHLORIDE. [Suspect]
     Active Substance: VENLAFAXINE HYDROCHLORIDE
     Indication: PRODUCT USED FOR UNKNOWN INDICATION
     Dosage: UNK

REACTIONS (1)
  - Drug-induced liver injury [Unknown]
